APPROVED DRUG PRODUCT: AMCINONIDE
Active Ingredient: AMCINONIDE
Strength: 0.1%
Dosage Form/Route: OINTMENT;TOPICAL
Application: A076367 | Product #001
Applicant: TARO PHARMACEUTICAL INDUSTRIES LTD
Approved: Mar 19, 2003 | RLD: No | RS: No | Type: DISCN